FAERS Safety Report 24417711 (Version 2)
Quarter: 2025Q1

REPORT INFORMATION
  Report Type: Spontaneous
  Country: US (occurrence: US)
  Receive Date: 20241009
  Receipt Date: 20250108
  Transmission Date: 20250408
  Serious: No
  Sender: MADRIGAL PHARMACEUTICALS
  Company Number: US-MADRIGAL PHARMACEUTICALS, INC-2024REZ0679

PATIENT

DRUGS (2)
  1. REZDIFFRA [Suspect]
     Active Substance: RESMETIROM
     Indication: Hepatic fibrosis
     Dosage: 100 MILLIGRAM, QD
     Route: 048
     Dates: start: 202406
  2. REZDIFFRA [Suspect]
     Active Substance: RESMETIROM
     Indication: Metabolic dysfunction-associated steatohepatitis

REACTIONS (2)
  - Pruritus [Recovering/Resolving]
  - Abdominal pain [Unknown]

NARRATIVE: CASE EVENT DATE: 20240101
